FAERS Safety Report 17616413 (Version 1)
Quarter: 2020Q2

REPORT INFORMATION
  Report Type: Spontaneous
  Country: JP (occurrence: JP)
  Receive Date: 20200402
  Receipt Date: 20200402
  Transmission Date: 20200713
  Serious: Yes (Hospitalization, Other)
  Sender: FDA-Public Use
  Company Number: JP-ACTELION-A-CH2020-203803

PATIENT
  Age: 8 Month
  Sex: Male

DRUGS (2)
  1. EPOPROSTENOL SODIUM. [Suspect]
     Active Substance: EPOPROSTENOL SODIUM
     Indication: NEWBORN PERSISTENT PULMONARY HYPERTENSION
     Route: 042
  2. NITRIC OXIDE. [Concomitant]
     Active Substance: NITRIC OXIDE

REACTIONS (8)
  - Pulmonary hypertension [Unknown]
  - Poor feeding infant [Unknown]
  - Respiratory failure [Unknown]
  - Cyanosis [Unknown]
  - Vomiting [Unknown]
  - Gastrooesophageal reflux disease [Unknown]
  - Oesophagogastric fundoplasty [Unknown]
  - Diaphragmatic operation [Unknown]
